FAERS Safety Report 23336128 (Version 4)
Quarter: 2024Q1

REPORT INFORMATION
  Report Type: Report from Study
  Country: AR (occurrence: AR)
  Receive Date: 20231225
  Receipt Date: 20240306
  Transmission Date: 20240410
  Serious: Yes (Other)
  Sender: FDA-Public Use
  Company Number: AR-002147023-NVSC2023AR198353

PATIENT
  Age: 50 Year
  Sex: Female

DRUGS (2)
  1. KISQALI [Suspect]
     Active Substance: RIBOCICLIB
     Indication: Breast cancer metastatic
     Dosage: 600 MG, QD (3 CYCLES OF 200 MG) (FOR 3 WEEKS AND STOP FOR ONE WEEK)
     Route: 048
     Dates: start: 20230810, end: 20231130
  2. LETROZOLE [Concomitant]
     Active Substance: LETROZOLE
     Indication: Product used for unknown indication
     Dosage: 2.5 MG, QD (FROM 24 JUL (YEAR: UNSPECIFIED)
     Route: 065

REACTIONS (8)
  - Hepatic infection [Unknown]
  - Hepatitis [Unknown]
  - Decreased immune responsiveness [Unknown]
  - Anaemia [Unknown]
  - Pain [Recovered/Resolved]
  - Cardiomegaly [Unknown]
  - Malaise [Unknown]
  - Liver disorder [Unknown]

NARRATIVE: CASE EVENT DATE: 20231130
